FAERS Safety Report 18250066 (Version 1)
Quarter: 2020Q3

REPORT INFORMATION
  Report Type: Spontaneous
  Country: MX (occurrence: MX)
  Receive Date: 20200909
  Receipt Date: 20200909
  Transmission Date: 20201103
  Serious: Yes (Hospitalization, Other)
  Sender: FDA-Public Use
  Company Number: MX-SA-2020SA238436

PATIENT

DRUGS (1)
  1. TOUJEO [Suspect]
     Active Substance: INSULIN GLARGINE
     Indication: TYPE 2 DIABETES MELLITUS
     Dosage: 18 IU
     Route: 058
     Dates: start: 20200310, end: 20200701

REACTIONS (3)
  - Unevaluable event [Recovered/Resolved]
  - Hyperglycaemia [Recovered/Resolved]
  - COVID-19 pneumonia [Recovered/Resolved]

NARRATIVE: CASE EVENT DATE: 2020
